FAERS Safety Report 17025601 (Version 3)
Quarter: 2019Q4

REPORT INFORMATION
  Report Type: Spontaneous
  Country: FR (occurrence: FR)
  Receive Date: 20191113
  Receipt Date: 20191128
  Transmission Date: 20200122
  Serious: Yes (Hospitalization)
  Sender: FDA-Public Use
  Company Number: FR-PFIZER INC-2019484188

PATIENT
  Age: 45 Year
  Sex: Female
  Weight: 65 kg

DRUGS (1)
  1. LIPUR [Suspect]
     Active Substance: GEMFIBROZIL
     Dosage: 1 (UNIT NOT PROVIDED), DAILY

REACTIONS (13)
  - Pruritus [Unknown]
  - Asthenia [Unknown]
  - Oedema peripheral [Unknown]
  - Arthralgia [Unknown]
  - Myalgia [Unknown]
  - Movement disorder [Unknown]
  - Rash [Unknown]
  - Pain in extremity [Unknown]
  - Tachypnoea [Unknown]
  - Inflammatory pain [Unknown]
  - Musculoskeletal stiffness [Unknown]
  - Dermatomyositis [Unknown]
  - Sinusitis [Unknown]

NARRATIVE: CASE EVENT DATE: 20180907
